FAERS Safety Report 18427032 (Version 1)
Quarter: 2020Q4

REPORT INFORMATION
  Report Type: Spontaneous
  Country: ES (occurrence: ES)
  Receive Date: 20201026
  Receipt Date: 20201026
  Transmission Date: 20210114
  Serious: Yes (Hospitalization)
  Sender: FDA-Public Use
  Company Number: ES-PFIZER INC-2020410553

PATIENT
  Age: 15 Year
  Sex: Female

DRUGS (2)
  1. OCTAGAMOCTA [Concomitant]
     Active Substance: HUMAN IMMUNOGLOBULIN G
     Dosage: 25 G, 1X/DAY (FREQ:24 H;25 GR)
     Route: 042
     Dates: start: 20200825, end: 20200826
  2. METHYLPREDNISOLONE SODIUM SUCCINATE. [Suspect]
     Active Substance: METHYLPREDNISOLONE SODIUM SUCCINATE
     Dosage: 8 MG, 2X/DAY (FREQ:12 H;8MG/12H)
     Route: 042
     Dates: start: 20200825, end: 20200826

REACTIONS (2)
  - Human herpesvirus 6 encephalitis [Recovered/Resolved]
  - Status epilepticus [Recovered/Resolved]

NARRATIVE: CASE EVENT DATE: 20200826
